FAERS Safety Report 16161560 (Version 1)
Quarter: 2019Q2

REPORT INFORMATION
  Report Type: Spontaneous
  Country: US (occurrence: US)
  Receive Date: 20190405
  Receipt Date: 20190405
  Transmission Date: 20190711
  Serious: No
  Sender: FDA-Public Use
  Company Number: US-TEVA-2019-US-1023281

PATIENT
  Sex: Female

DRUGS (1)
  1. NICOTINE POLACRILEX [Suspect]
     Active Substance: NICOTINE
     Indication: SMOKING CESSATION THERAPY
     Dosage: DOSE STRENGTH: 2
     Route: 048
     Dates: start: 20190227, end: 20190305

REACTIONS (2)
  - Lymphadenopathy [Unknown]
  - Erythema [Unknown]

NARRATIVE: CASE EVENT DATE: 20190302
